FAERS Safety Report 6895800-2 (Version None)
Quarter: 2010Q3

REPORT INFORMATION
  Report Type: 
  Country: None (occurrence: None)
  Receive Date: 20100728
  Receipt Date: 20100719
  Transmission Date: 20110219
  Serious: Yes (Hospitalization)
  Sender: FDA-Public Use
  Company Number: UTC-001215

PATIENT
  Age: 59 Year
  Sex: Female
  Weight: 102 kg

DRUGS (18)
  1. TYVASO [Suspect]
     Indication: PULMONARY ARTERIAL HYPERTENSION
     Dosage: 216 MCG, 1 D, INHALATION
     Route: 055
     Dates: start: 20100514
  2. TYVASO [Suspect]
     Indication: THROMBOSIS
     Dosage: 216 MCG, 1 D, INHALATION
     Route: 055
     Dates: start: 20100514
  3. ALBUTEROL [Concomitant]
  4. NEURONTIN [Concomitant]
  5. SINGULAIR [Concomitant]
  6. OXYCET [Concomitant]
  7. COUMADIN [Concomitant]
  8. ZYRTEC [Concomitant]
  9. FUROSEMIDE [Concomitant]
  10. METOLAZONE [Concomitant]
  11. SPIRONOLACTONE [Concomitant]
  12. MAGNESIUM (MAGNESIUM) [Concomitant]
  13. REQUIP [Concomitant]
  14. CLONAZEPAM [Concomitant]
  15. NASONEX [Concomitant]
  16. NORTRIPTYLINE HCL [Concomitant]
  17. XALATAN [Concomitant]
  18. NITRO-DUR [Concomitant]

REACTIONS (1)
  - CARBON DIOXIDE INCREASED [None]
